FAERS Safety Report 9904916 (Version 1)
Quarter: 2013Q2

REPORT INFORMATION
  Report Type: Spontaneous
  Country: US (occurrence: None)
  Receive Date: 20130305
  Receipt Date: 20130305
  Transmission Date: 20140414
  Serious: No
  Sender: FDA-Public Use
  Company Number: 1000041193

PATIENT
  Age: 54 Year
  Sex: Female

DRUGS (3)
  1. DALIRESP [Suspect]
     Dosage: 500 MCG, (500 MCG, 1 IN 1 D), ORAL
     Route: 048
     Dates: start: 201212, end: 20121217
  2. LEVOTHYROXINE (LEVOTHYROXINE) (LEVOTHROXINE SODIUM)) [Concomitant]
  3. PRILOSEC (OMEPRAZOLE) (OMEPRAZOLE) [Concomitant]

REACTIONS (4)
  - Hypersomnia [None]
  - Fatigue [None]
  - Diarrhoea [None]
  - Back pain [None]
